FAERS Safety Report 23741337 (Version 2)
Quarter: 2024Q2

REPORT INFORMATION
  Report Type: Report from Study
  Country: US (occurrence: US)
  Receive Date: 20240415
  Receipt Date: 20240426
  Transmission Date: 20240716
  Serious: Yes (Hospitalization)
  Sender: FDA-Public Use
  Company Number: US-ACADIA PHARMACEUTICALS INC.-ACA-2024-PIM-001686

PATIENT
  Age: 87 Year
  Sex: Female

DRUGS (23)
  1. NUPLAZID [Suspect]
     Active Substance: PIMAVANSERIN TARTRATE
     Indication: Parkinson^s disease psychosis
     Dosage: 34 MILLIGRAM, QD
     Dates: start: 20240222, end: 20240302
  2. TRAZODONE HCL [Concomitant]
     Active Substance: TRAZODONE HYDROCHLORIDE
     Dosage: 50 MILLIGRAM, 1/4 ORALLY AT 8 AM AND 8 PM
     Route: 048
  3. SINEMET [Concomitant]
     Active Substance: CARBIDOPA\LEVODOPA
     Dosage: 25-100 MG, 1.5 TABLET ORALLY, THREE TIMES A DAY
  4. SINEMET CR [Concomitant]
     Active Substance: CARBIDOPA\LEVODOPA
     Dosage: 25-100 MG, 1 TABLET EVERY BEDTIME
  5. MIRAPEX [Concomitant]
     Active Substance: PRAMIPEXOLE DIHYDROCHLORIDE
     Dosage: 0.75 MILLIGRAM, TID
     Route: 048
  6. METOPROLOL SUCCINATE [Concomitant]
     Active Substance: METOPROLOL SUCCINATE
     Dosage: 25 MILLIGRAM, 1/2 TABLET ORALLY ONCE A DAY IN THE EVENING
  7. REPAGLINIDE [Concomitant]
     Active Substance: REPAGLINIDE
     Dosage: 0.5 MG TALBET 1 TABLET 15 TO 30 MINUTES BEFORE MEALS ORALLY TWICE A DAY
  8. BUMETANIDE [Concomitant]
     Active Substance: BUMETANIDE
     Dosage: 1 MILLIGRAM, QD
     Route: 048
  9. PRAVASTATIN SODIUM [Concomitant]
     Active Substance: PRAVASTATIN SODIUM
     Dosage: 20 MILLIGRAM, QD
     Route: 048
  10. ASPIRIN [Concomitant]
     Active Substance: ASPIRIN
     Dosage: 81 MILLIGRAM, QD
     Route: 048
  11. BUMEX [Concomitant]
     Active Substance: BUMETANIDE
     Dosage: 0.5 MILLIGRAM, QD
     Route: 048
  12. BUMEX [Concomitant]
     Active Substance: BUMETANIDE
     Dosage: 2 MILLIGRAM, QD
     Route: 048
     Dates: start: 20240308, end: 20240407
  13. BALMEX ADULT CARE [Concomitant]
     Dosage: 11.3 % AS DIRECTED EXTERNALLY
     Route: 061
  14. VITAMINS NOS [Concomitant]
     Active Substance: VITAMINS
     Dosage: 1 TABLET ONCE A DAY
     Route: 048
  15. MUCINEX [Concomitant]
     Active Substance: GUAIFENESIN
     Dosage: 600 MILLIGRAM, 12 HOUR 1 TABLET, TAKE IN EVENING
  16. CALCIUM CARBONATE\VITAMIN D [Concomitant]
     Active Substance: CALCIUM CARBONATE\VITAMIN D
     Dosage: 600-400 MG-UNIT TABLET 1 ORALLY DAILY
     Route: 048
  17. VITAMIN B12 [Concomitant]
     Active Substance: CYANOCOBALAMIN
     Dosage: 1000 MICROGRAM, QD
     Route: 048
  18. ACETAMINOPHEN [Concomitant]
     Active Substance: ACETAMINOPHEN
     Dosage: 500 MG, 2 CAPSULES ORALLY TWICE A DAY AND Q24HRS AS NEEDED
  19. CHOLECALCIFEROL [Concomitant]
     Active Substance: CHOLECALCIFEROL
     Dosage: 2000 INTERNATIONAL UNIT, 1 TABLET DAILY
     Route: 048
  20. NORVASC [Concomitant]
     Active Substance: AMLODIPINE BESYLATE
     Dosage: 10 MILLIGRAM, QD
     Route: 048
     Dates: start: 20240308, end: 20240407
  21. COZAAR [Concomitant]
     Active Substance: LOSARTAN POTASSIUM
     Dosage: 100 MILLIGRAM, QD
     Dates: start: 20240308, end: 20240407
  22. MELATONIN [Concomitant]
     Active Substance: MELATONIN
     Dosage: TAKE 2 TABLETS, 6 MG NIGHTLY
     Route: 048
     Dates: start: 20240308, end: 20240407
  23. MIRALAX [Concomitant]
     Active Substance: POLYETHYLENE GLYCOL 3350
     Indication: Constipation
     Dosage: TAKE 17 GM AS NEEDED
     Route: 048
     Dates: start: 20240308, end: 20240407

REACTIONS (4)
  - Lethargy [Recovered/Resolved]
  - Mental status changes [Recovered/Resolved]
  - Urinary tract infection [Unknown]
  - Hypertension [Recovered/Resolved]

NARRATIVE: CASE EVENT DATE: 20240301
